FAERS Safety Report 18366276 (Version 2)
Quarter: 2020Q4

REPORT INFORMATION
  Report Type: Spontaneous
  Country: CN (occurrence: CN)
  Receive Date: 20201009
  Receipt Date: 20201016
  Transmission Date: 20210114
  Serious: Yes (Other)
  Sender: FDA-Public Use
  Company Number: CN-009507513-2010CHN001314

PATIENT
  Age: 69 Year
  Sex: Male

DRUGS (2)
  1. SODIUM CHLORIDE. [Concomitant]
     Active Substance: SODIUM CHLORIDE
     Indication: CARDIAC FAILURE
     Dosage: 100 MILLILITER, QD
     Route: 041
     Dates: start: 20200915, end: 20200921
  2. INVANZ [Suspect]
     Active Substance: ERTAPENEM SODIUM
     Indication: PNEUMONIA
     Dosage: 1G, IV DRIP, QD
     Route: 041
     Dates: start: 20200915, end: 20200921

REACTIONS (2)
  - Somnolence [Recovering/Resolving]
  - Encephalopathy [Recovering/Resolving]

NARRATIVE: CASE EVENT DATE: 20200916
